FAERS Safety Report 8132904-0 (Version None)
Quarter: 2012Q1

REPORT INFORMATION
  Report Type: 
  Country: None (occurrence: None)
  Receive Date: 20120208
  Receipt Date: 20120130
  Transmission Date: 20120608
  Serious: Yes (Other)
  Sender: FDA-Public Use
  Company Number: 1181057

PATIENT
  Age: 58 Year
  Sex: Female

DRUGS (1)
  1. DOCETAXEL [Suspect]
     Indication: BREAST CANCER
     Dosage: 130 MG MILLIGRAM(S) INTRAVENOUS DRIP
     Route: 041
     Dates: start: 20111223, end: 20120113

REACTIONS (2)
  - HOT FLUSH [None]
  - SENSE OF OPPRESSION [None]
